FAERS Safety Report 7875255-1 (Version None)
Quarter: 2011Q4

REPORT INFORMATION
  Report Type: 
  Country: None (occurrence: None)
  Receive Date: 20111031
  Receipt Date: 20111024
  Transmission Date: 20120403
  Serious: Yes (Other)
  Sender: FDA-Public Use
  Company Number: BR-PFIZER INC-2011258705

PATIENT
  Age: 74 Year
  Sex: Male

DRUGS (4)
  1. ATORVASTATIN CALCIUM [Suspect]
     Dosage: 20 MG, UNK
  2. CLOPIDOGREL [Concomitant]
     Indication: ARTERIOSCLEROSIS
     Dosage: 75 MG, UNK
  3. METFORMIN HCL [Suspect]
     Dosage: 850 MG, 3X/DAY
  4. DIOVAN HCT [Suspect]
     Dosage: 160/125 MG, UNK

REACTIONS (13)
  - GASTROENTERITIS [None]
  - RENAL IMPAIRMENT [None]
  - BLOOD CREATININE INCREASED [None]
  - GLYCOSYLATED HAEMOGLOBIN INCREASED [None]
  - BLOOD UREA INCREASED [None]
  - CREATININE RENAL CLEARANCE DECREASED [None]
  - BODY MASS INDEX INCREASED [None]
  - BLOOD PRESSURE INCREASED [None]
  - PEDAL PULSE DECREASED [None]
  - RINNE TUNING FORK TEST ABNORMAL [None]
  - HYPOTENSION [None]
  - BLOOD GLUCOSE INCREASED [None]
  - PROTEINURIA [None]
